FAERS Safety Report 9650479 (Version 2)
Quarter: 2013Q4

REPORT INFORMATION
  Report Type: Spontaneous
  Country: US (occurrence: US)
  Receive Date: 20131029
  Receipt Date: 20131111
  Transmission Date: 20140711
  Serious: Yes (Other)
  Sender: FDA-Public Use
  Company Number: US-AMGEN-USASP2013075697

PATIENT
  Age: 81 Year
  Sex: Female

DRUGS (1)
  1. ENBREL [Suspect]
     Indication: RHEUMATOID ARTHRITIS
     Dosage: 50 MG, QWK
     Route: 065
     Dates: start: 20090504

REACTIONS (10)
  - Scoliosis [Not Recovered/Not Resolved]
  - Nerve compression [Unknown]
  - Hiatus hernia [Not Recovered/Not Resolved]
  - Nausea [Not Recovered/Not Resolved]
  - Local swelling [Not Recovered/Not Resolved]
  - Musculoskeletal stiffness [Not Recovered/Not Resolved]
  - Elbow deformity [Not Recovered/Not Resolved]
  - Condition aggravated [Unknown]
  - Bone pain [Unknown]
  - Muscle spasms [Not Recovered/Not Resolved]
